FAERS Safety Report 6960031-4 (Version None)
Quarter: 2010Q3

REPORT INFORMATION
  Report Type: 
  Country: None (occurrence: None)
  Receive Date: 20100901
  Receipt Date: 20100817
  Transmission Date: 20110219
  Serious: No
  Sender: FDA-Public Use
  Company Number: US-BAYER-201031160NA

PATIENT
  Age: 29 Year
  Sex: Female

DRUGS (1)
  1. MIRENA [Suspect]
     Indication: CONTRACEPTION
     Route: 015
     Dates: start: 20081101, end: 20100614

REACTIONS (10)
  - ACNE [None]
  - ALOPECIA [None]
  - AMENORRHOEA [None]
  - ANXIETY [None]
  - ASTHENIA [None]
  - DISTURBANCE IN ATTENTION [None]
  - ONYCHOCLASIS [None]
  - PANIC ATTACK [None]
  - PREGNANCY WITH CONTRACEPTIVE DEVICE [None]
  - WEIGHT INCREASED [None]
